FAERS Safety Report 6233412-4 (Version None)
Quarter: 2009Q2

REPORT INFORMATION
  Report Type: 
  Country: None (occurrence: None)
  Receive Date: 20090617
  Receipt Date: 20090227
  Transmission Date: 20091009
  Serious: No
  Sender: FDA-Public Use
  Company Number: US-TYCO HEALTHCARE/MALLINCKRODT-T200900589

PATIENT
  Age: 40 Year
  Sex: Female

DRUGS (4)
  1. ULTRATAG [Suspect]
     Indication: RADIOISOTOPE SCAN
     Dosage: UNK
     Dates: start: 20090227, end: 20090227
  2. TECHNETIUM TC 99M GENERATOR [Concomitant]
     Indication: RADIOISOTOPE SCAN
     Dosage: UNK
     Dates: start: 20090227, end: 20090227
  3. MULTIVITAMIN                       /00831701/ [Concomitant]
  4. PERCOCET [Concomitant]

REACTIONS (1)
  - DRUG INEFFECTIVE [None]
